FAERS Safety Report 15243778 (Version 1)
Quarter: 2018Q3

REPORT INFORMATION
  Report Type: Spontaneous
  Country: CN (occurrence: CN)
  Receive Date: 20180806
  Receipt Date: 20180806
  Transmission Date: 20181010
  Serious: Yes (Other)
  Sender: FDA-Public Use
  Company Number: CN-ROCHE-2161880

PATIENT
  Age: 80 Year
  Sex: Male
  Weight: 62 kg

DRUGS (4)
  1. CEFMINOX SODIUM [Suspect]
     Active Substance: CEFMINOX SODIUM
     Indication: LUNG INFECTION
     Route: 041
     Dates: start: 20180526, end: 20180531
  2. SODIUM CHLORIDE. [Suspect]
     Active Substance: SODIUM CHLORIDE
     Indication: LUNG INFECTION
     Route: 041
     Dates: start: 20180526, end: 20180531
  3. TAMIFLU [Suspect]
     Active Substance: OSELTAMIVIR PHOSPHATE
     Indication: LUNG INFECTION
     Route: 048
     Dates: start: 20180526, end: 20180529
  4. MOXIFLOXACIN HYDROCHLORIDE. [Suspect]
     Active Substance: MOXIFLOXACIN HYDROCHLORIDE
     Indication: LUNG INFECTION
     Route: 041
     Dates: start: 20180526, end: 20180531

REACTIONS (3)
  - Full blood count decreased [Not Recovered/Not Resolved]
  - Off label use [Unknown]
  - Intentional product use issue [Unknown]

NARRATIVE: CASE EVENT DATE: 20180529
